FAERS Safety Report 8755888 (Version 18)
Quarter: 2015Q3

REPORT INFORMATION
  Report Type: Spontaneous
  Country: CA (occurrence: CA)
  Receive Date: 20120830
  Receipt Date: 20150904
  Transmission Date: 20151125
  Serious: Yes (Other)
  Sender: FDA-Public Use
  Company Number: CA-ROCHE-1103786

PATIENT
  Age: 62 Year
  Sex: Female

DRUGS (8)
  1. SYMBICORT [Concomitant]
     Active Substance: BUDESONIDE\FORMOTEROL FUMARATE DIHYDRATE
  2. CORTISONE [Concomitant]
     Active Substance: CORTISONE\HYDROCORTISONE
  3. XOLAIR [Suspect]
     Active Substance: OMALIZUMAB
     Indication: ASTHMA
     Route: 058
     Dates: start: 20100421
  4. SINGULAIR [Concomitant]
     Active Substance: MONTELUKAST SODIUM
  5. XOLAIR [Suspect]
     Active Substance: OMALIZUMAB
     Route: 058
     Dates: start: 20150422
  6. ALVESCO [Concomitant]
     Active Substance: CICLESONIDE
  7. BRICANYL [Concomitant]
     Active Substance: TERBUTALINE SULFATE
  8. AMOXICLAV [Concomitant]
     Active Substance: AMOXICILLIN\CLAVULANIC ACID
     Indication: BRONCHITIS

REACTIONS (23)
  - Oropharyngeal pain [Unknown]
  - Total lung capacity decreased [Recovering/Resolving]
  - Hypoaesthesia [Unknown]
  - Headache [Not Recovered/Not Resolved]
  - General physical health deterioration [Unknown]
  - Nasopharyngitis [Unknown]
  - Dyspnoea [Unknown]
  - Bronchitis [Recovered/Resolved]
  - Respiratory depression [Unknown]
  - Chest discomfort [Unknown]
  - Drug-induced liver injury [Recovering/Resolving]
  - Sputum discoloured [Not Recovered/Not Resolved]
  - Paraesthesia [Recovered/Resolved]
  - Injection site erythema [Recovered/Resolved]
  - Sputum retention [Unknown]
  - Cough [Unknown]
  - Drug ineffective [Unknown]
  - Skin irritation [Unknown]
  - Dyspnoea exertional [Not Recovered/Not Resolved]
  - Wheezing [Unknown]
  - Injection site pain [Unknown]
  - Jaundice [Unknown]
  - Blood pressure increased [Unknown]

NARRATIVE: CASE EVENT DATE: 20100421
